FAERS Safety Report 19089143 (Version 3)
Quarter: 2021Q4

REPORT INFORMATION
  Report Type: Report from Study
  Country: KE (occurrence: KE)
  Receive Date: 20210403
  Receipt Date: 20211230
  Transmission Date: 20220303
  Serious: No
  Sender: FDA-Public Use
  Company Number: KE-CIPLA LTD.-2021KE02457

PATIENT

DRUGS (2)
  1. LOPINAVIR\RITONAVIR [Suspect]
     Active Substance: LOPINAVIR\RITONAVIR
     Indication: HIV infection
     Dosage: 120/30 MG, BID
     Route: 048
     Dates: start: 20170717, end: 20170731
  2. ABACAVIR\LAMIVUDINE [Suspect]
     Active Substance: ABACAVIR\LAMIVUDINE
     Indication: HIV infection
     Dosage: 90/45 MG, BID
     Route: 048
     Dates: start: 20170717, end: 20170731

REACTIONS (1)
  - Gastroenteritis [None]

NARRATIVE: CASE EVENT DATE: 20170731
